FAERS Safety Report 17799384 (Version 3)
Quarter: 2020Q4

REPORT INFORMATION
  Report Type: Report from Study
  Country: CA (occurrence: CA)
  Receive Date: 20200518
  Receipt Date: 20201026
  Transmission Date: 20210113
  Serious: Yes (Hospitalization, Other)
  Sender: FDA-Public Use
  Company Number: CA-JNJFOC-20200427554

PATIENT
  Age: 17 Year
  Sex: Female
  Weight: 81.72 kg

DRUGS (2)
  1. STELARA [Suspect]
     Active Substance: USTEKINUMAB
     Route: 042
  2. STELARA [Suspect]
     Active Substance: USTEKINUMAB
     Indication: HIDRADENITIS
     Route: 058
     Dates: start: 20200408, end: 20200413

REACTIONS (10)
  - Headache [Unknown]
  - Off label use [Unknown]
  - Haematochezia [Not Recovered/Not Resolved]
  - Infection [Unknown]
  - Urticaria [Not Recovered/Not Resolved]
  - Loss of consciousness [Not Recovered/Not Resolved]
  - Vomiting [Not Recovered/Not Resolved]
  - Internal haemorrhage [Not Recovered/Not Resolved]
  - Rash [Not Recovered/Not Resolved]
  - Product use in unapproved indication [Unknown]

NARRATIVE: CASE EVENT DATE: 202004
